FAERS Safety Report 7661434-5 (Version None)
Quarter: 2011Q3

REPORT INFORMATION
  Report Type: 
  Country: None (occurrence: None)
  Receive Date: 20110805
  Receipt Date: 20101014
  Transmission Date: 20111222
  Serious: No
  Sender: FDA-Public Use
  Company Number: US-ABBOTT-10P-163-0678987-00

PATIENT
  Sex: Male
  Weight: 123.03 kg

DRUGS (7)
  1. LISINOPRIL AND HYDROCHLOROTHIAZIDE [Concomitant]
     Indication: HYPERTENSION
     Dosage: 20/12.5, ONCE DAILY
     Route: 048
  2. FEXOFENADINE [Concomitant]
     Indication: SEASONAL ALLERGY
     Route: 048
  3. LOVAZA [Concomitant]
     Indication: SUPPLEMENTATION THERAPY
     Route: 048
  4. FLAX SEED OIL [Concomitant]
     Indication: SUPPLEMENTATION THERAPY
     Route: 048
  5. SENIOR MULTIVITAMIN [Concomitant]
     Indication: VITAMIN SUPPLEMENTATION
     Route: 048
  6. NIASPAN [Suspect]
     Indication: BLOOD CHOLESTEROL
     Route: 048
     Dates: start: 20090101
  7. SIMVASTATIN [Concomitant]
     Indication: BLOOD CHOLESTEROL INCREASED
     Route: 048

REACTIONS (2)
  - OSTEOARTHRITIS [None]
  - PARAESTHESIA [None]
